FAERS Safety Report 24139066 (Version 1)
Quarter: 2024Q3

REPORT INFORMATION
  Report Type: Spontaneous
  Country: US (occurrence: US)
  Receive Date: 20240726
  Receipt Date: 20240726
  Transmission Date: 20241017
  Serious: No
  Sender: NOVARTIS
  Company Number: US-002147023-NVSC2024US150090

PATIENT
  Sex: Female

DRUGS (1)
  1. CYCLOSPORINE [Suspect]
     Active Substance: CYCLOSPORINE
     Indication: Topical steroid withdrawal reaction
     Dosage: UNK
     Route: 065

REACTIONS (5)
  - Fungal infection [Unknown]
  - Gingival disorder [Unknown]
  - Immune system disorder [Unknown]
  - Condition aggravated [Unknown]
  - Drug ineffective [Unknown]
